FAERS Safety Report 4972668-2 (Version None)
Quarter: 2006Q1

REPORT INFORMATION
  Report Type: 
  Country: None (occurrence: None)
  Receive Date: 20060216
  Receipt Date: 20021115
  Transmission Date: 20060701
  Serious: Yes (Hospitalization)
  Sender: FDA-Public Use
  Company Number: 2002IM000838

PATIENT
  Age: 56 Year
  Sex: Female
  Weight: 58 kg

DRUGS (3)
  1. INTERFERON GAMMA-1B [Suspect]
     Indication: OVARIAN CANCER
     Dosage: 100 UG, TIW, SUBCUTANEOUS
     Route: 058
     Dates: start: 20020925, end: 20021027
  2. CARBOPLATIN [Suspect]
     Indication: OVARIAN CANCER
     Dosage: 750 MG, Q3W, SUBCUTANEOUS
     Route: 058
     Dates: start: 20020925, end: 20021017
  3. PACLITAXEL [Suspect]
     Indication: OVARIAN CANCER
     Dosage: 280 MG, Q3W, INTRAVENOUS
     Route: 042
     Dates: start: 20020925, end: 20021017

REACTIONS (1)
  - URINARY TRACT INFECTION [None]
